FAERS Safety Report 4404101-3 (Version None)
Quarter: 2004Q3

REPORT INFORMATION
  Report Type: 
  Country: None (occurrence: None)
  Receive Date: 20040722
  Receipt Date: 20040712
  Transmission Date: 20050211
  Serious: Yes (Hospitalization)
  Sender: FDA-Public Use
  Company Number: PHEH2004US07477

PATIENT

DRUGS (1)
  1. ZELNORM [Suspect]

REACTIONS (1)
  - COLITIS ISCHAEMIC [None]
